FAERS Safety Report 26155527 (Version 1)
Quarter: 2025Q4

REPORT INFORMATION
  Report Type: Spontaneous
  Country: CN (occurrence: CN)
  Receive Date: 20251215
  Receipt Date: 20251215
  Transmission Date: 20260118
  Serious: No
  Sender: ALKEM
  Company Number: CN-ALKEM LABORATORIES LIMITED-CN-ALKEM-2025-10579

PATIENT
  Age: 29 Year
  Sex: Female

DRUGS (5)
  1. TACROLIMUS [Suspect]
     Active Substance: TACROLIMUS
     Indication: Angiolymphoid hyperplasia with eosinophilia
     Dosage: 2 MILLIGRAM, QD (MORNING)
     Route: 065
  2. TACROLIMUS [Suspect]
     Active Substance: TACROLIMUS
     Indication: Lymphadenopathy
     Dosage: 1 MILLIGRAM, HS (NIGHT)
     Route: 065
  3. TACROLIMUS [Suspect]
     Active Substance: TACROLIMUS
     Dosage: UNK (TAPERED OFF)
     Route: 065
  4. PREDNISONE [Concomitant]
     Active Substance: PREDNISONE
     Indication: Angiolymphoid hyperplasia with eosinophilia
     Dosage: 12.5 MILLIGRAM, QD
     Route: 065
  5. PREDNISONE [Concomitant]
     Active Substance: PREDNISONE
     Indication: Lymphadenopathy
     Dosage: UNK (TAPERED OFF)
     Route: 065

REACTIONS (1)
  - Therapy non-responder [Unknown]
